FAERS Safety Report 6473507-3 (Version None)
Quarter: 2009Q4

REPORT INFORMATION
  Report Type: 
  Country: None (occurrence: None)
  Receive Date: 20091204
  Receipt Date: 20081105
  Transmission Date: 20100525
  Serious: Yes (Death, Other)
  Sender: FDA-Public Use
  Company Number: JP-ELI_LILLY_AND_COMPANY-JP200810001980

PATIENT
  Sex: Male
  Weight: 55 kg

DRUGS (7)
  1. PEMETREXED [Suspect]
     Indication: PLEURAL MESOTHELIOMA MALIGNANT
     Dosage: 500 MG, OTHER
     Route: 042
     Dates: start: 20080122, end: 20080220
  2. CISPLATIN [Suspect]
     Indication: PLEURAL MESOTHELIOMA MALIGNANT
     Dosage: 75 MG, OTHER
     Route: 042
     Dates: start: 20080122, end: 20080122
  3. CISPLATIN [Suspect]
     Dosage: 50 MG, OTHER
     Route: 042
     Dates: start: 20080220, end: 20080220
  4. PANVITAN [Concomitant]
     Dosage: 1 G, DAILY (1/D)
     Route: 048
     Dates: start: 20080115, end: 20080402
  5. METHYCOBAL [Concomitant]
     Dosage: 1 MG, DAILY (1/D)
     Route: 030
     Dates: start: 20080115, end: 20080115
  6. OXYCONTIN [Concomitant]
     Indication: PROPHYLAXIS
     Dosage: 10 MG, UNK
  7. OXYCODONE HCL [Concomitant]
     Indication: PROPHYLAXIS
     Dosage: 2.5 MG, UNK

REACTIONS (3)
  - ACUTE MYOCARDIAL INFARCTION [None]
  - DELIRIUM [None]
  - NEUTROPHIL COUNT DECREASED [None]
